FAERS Safety Report 9427990 (Version 1)
Quarter: 2013Q3

REPORT INFORMATION
  Report Type: Report from Study
  Country: US (occurrence: US)
  Receive Date: 20130730
  Receipt Date: 20130730
  Transmission Date: 20140515
  Serious: No
  Sender: FDA-Public Use
  Company Number: US-ABBOTT-12P-163-1000925-00

PATIENT
  Age: 44 Year
  Sex: Female
  Weight: 93.07 kg

DRUGS (10)
  1. NIASPAN (COATED) [Suspect]
     Indication: HIGH DENSITY LIPOPROTEIN
     Route: 048
     Dates: start: 20121018
  2. AMBIEN [Concomitant]
     Indication: PRODUCT USED FOR UNKNOWN INDICATION
     Dosage: EVERY NIGHT
  3. XANAX [Concomitant]
     Indication: PRODUCT USED FOR UNKNOWN INDICATION
     Dosage: AS NEEDED
  4. PANTOPRAZOLE [Concomitant]
     Indication: PRODUCT USED FOR UNKNOWN INDICATION
  5. CYMBALTA [Concomitant]
     Indication: PRODUCT USED FOR UNKNOWN INDICATION
     Route: 048
  6. HORMONE THERAPY [Concomitant]
     Indication: PRODUCT USED FOR UNKNOWN INDICATION
  7. AMIRSA [Concomitant]
     Indication: PRODUCT USED FOR UNKNOWN INDICATION
  8. MOBIC [Concomitant]
     Indication: PRODUCT USED FOR UNKNOWN INDICATION
     Route: 048
  9. SYNTHROID [Concomitant]
     Indication: PRODUCT USED FOR UNKNOWN INDICATION
     Route: 048
  10. LISINOPRIL [Concomitant]
     Indication: PRODUCT USED FOR UNKNOWN INDICATION
     Route: 048

REACTIONS (6)
  - Adverse drug reaction [Recovering/Resolving]
  - Flushing [Recovering/Resolving]
  - Burning sensation [Unknown]
  - Abdominal discomfort [Unknown]
  - Pruritus [Unknown]
  - Feeling hot [Unknown]
